FAERS Safety Report 23328433 (Version 1)
Quarter: 2023Q4

REPORT INFORMATION
  Report Type: Spontaneous
  Country: US (occurrence: US)
  Receive Date: 20231221
  Receipt Date: 20231221
  Transmission Date: 20240110
  Serious: Yes (Hospitalization, Other)
  Sender: FDA-Public Use
  Company Number: US-BEH-2023166572

PATIENT
  Sex: Male

DRUGS (2)
  1. HUMATE-P [Suspect]
     Active Substance: HUMAN COAGULATION FACTOR VIII/VON WILLEBRAND FACTOR COMPLEX
     Indication: Von Willebrand^s disease
     Dosage: UNK, QD
     Route: 042
  2. DUPIXENT [Concomitant]
     Active Substance: DUPILUMAB
     Dosage: UNK
     Route: 065
     Dates: start: 202204

REACTIONS (2)
  - Gastrointestinal haemorrhage [Unknown]
  - Stress ulcer [Unknown]
